FAERS Safety Report 21361531 (Version 1)
Quarter: 2022Q3

REPORT INFORMATION
  Report Type: Spontaneous
  Country: US (occurrence: US)
  Receive Date: 20220921
  Receipt Date: 20220921
  Transmission Date: 20221027
  Serious: No
  Sender: FDA-Public Use
  Company Number: US-PADAGIS-2022PAD00648

PATIENT

DRUGS (1)
  1. NYSTOP [Suspect]
     Active Substance: NYSTATIN
     Indication: Fungal infection
     Dosage: BID
     Route: 065
     Dates: start: 202209

REACTIONS (3)
  - Rash [Not Recovered/Not Resolved]
  - Incorrect dosage administered [Unknown]
  - Product use in unapproved indication [Unknown]

NARRATIVE: CASE EVENT DATE: 20220901
